FAERS Safety Report 13799104 (Version 1)
Quarter: 2017Q3

REPORT INFORMATION
  Report Type: Spontaneous
  Country: US (occurrence: US)
  Receive Date: 20170727
  Receipt Date: 20170727
  Transmission Date: 20171127
  Serious: No
  Sender: FDA-Public Use
  Company Number: US-JNJFOC-20170615437

PATIENT
  Age: 21 Year
  Sex: Female
  Weight: 145.15 kg

DRUGS (3)
  1. VISINE A MULTI-ACTION EYE ALLERGY RELIEF [Suspect]
     Active Substance: NAPHAZOLINE HYDROCHLORIDE\PHENIRAMINE MALEATE
     Indication: DRY EYE
     Dosage: 2 DROPS IN EACH EYE 2 TIMES DAILY.
     Route: 047
     Dates: end: 20170610
  2. VISINE A MULTI-ACTION EYE ALLERGY RELIEF [Suspect]
     Active Substance: NAPHAZOLINE HYDROCHLORIDE\PHENIRAMINE MALEATE
     Indication: EYE PRURITUS
     Dosage: 2 DROPS IN EACH EYE 2 TIMES DAILY.
     Route: 047
     Dates: end: 20170610
  3. LORTADINE [Concomitant]
     Indication: MULTIPLE ALLERGIES
     Dosage: ONE DAILY, YEARS.
     Route: 065

REACTIONS (2)
  - Eye pain [Recovered/Resolved]
  - Product use in unapproved indication [Recovered/Resolved]
